FAERS Safety Report 7393104-5 (Version None)
Quarter: 2011Q2

REPORT INFORMATION
  Report Type: 
  Country: None (occurrence: None)
  Receive Date: 20110404
  Receipt Date: 20110329
  Transmission Date: 20111010
  Serious: Yes (Hospitalization)
  Sender: FDA-Public Use
  Company Number: US-GILEAD-2011-0036756

PATIENT
  Sex: Male

DRUGS (6)
  1. LETAIRIS [Suspect]
     Indication: PULMONARY HYPERTENSION
     Route: 048
     Dates: start: 20070824
  2. LETAIRIS [Suspect]
     Indication: CHRONIC OBSTRUCTIVE PULMONARY DISEASE
  3. LETAIRIS [Suspect]
  4. TRACLEER [Concomitant]
  5. REVATIO [Concomitant]
  6. LETAIRIS [Suspect]
     Indication: RHEUMATOID ARTHRITIS

REACTIONS (7)
  - ASPIRATION [None]
  - RENAL FAILURE ACUTE [None]
  - RESPIRATORY FAILURE [None]
  - INFLUENZA [None]
  - PNEUMONIA STAPHYLOCOCCAL [None]
  - SHOCK [None]
  - ATRIAL FIBRILLATION [None]
